FAERS Safety Report 18256608 (Version 1)
Quarter: 2020Q3

REPORT INFORMATION
  Report Type: Spontaneous
  Country: US (occurrence: US)
  Receive Date: 20200910
  Receipt Date: 20200910
  Transmission Date: 20201103
  Serious: Yes (Hospitalization)
  Sender: FDA-Public Use
  Company Number: None

PATIENT
  Age: 8 Year
  Sex: Male

DRUGS (1)
  1. TOBRAMYCIN 300MG/5ML 20ML [Suspect]
     Active Substance: TOBRAMYCIN
     Indication: LUNG DISORDER
     Dosage: ROUTE: 28 D ON ? 28 D OFF
     Route: 055
     Dates: start: 20100503

REACTIONS (3)
  - Vomiting [None]
  - Respiratory disorder [None]
  - Viral infection [None]

NARRATIVE: CASE EVENT DATE: 20200907
